FAERS Safety Report 6940665-3 (Version None)
Quarter: 2010Q3

REPORT INFORMATION
  Report Type: 
  Country: None (occurrence: None)
  Receive Date: 20100825
  Receipt Date: 20100816
  Transmission Date: 20110219
  Serious: Yes (Life-Threatening)
  Sender: FDA-Public Use
  Company Number: EG-ROCHE-690743

PATIENT
  Sex: Male
  Weight: 85 kg

DRUGS (2)
  1. TOCILIZUMAB [Suspect]
     Indication: RHEUMATOID ARTHRITIS
     Dosage: FORM: INFUSION, LAST DOSE PRIOR TO SAE: 13 FEBRUARY 2010.
     Route: 042
     Dates: start: 20100213, end: 20100513
  2. METHOTREXATE [Suspect]
     Indication: RHEUMATOID ARTHRITIS
     Dosage: FORM: IM, LAST DOSE PRIOR TO SAE: 13 MARCH 2010.
     Route: 030
     Dates: start: 20100213, end: 20100313

REACTIONS (2)
  - LEUKOPENIA [None]
  - NEUTROPENIA [None]
